FAERS Safety Report 8557462-8 (Version None)
Quarter: 2012Q3

REPORT INFORMATION
  Report Type: 
  Country: None (occurrence: None)
  Receive Date: 20120801
  Receipt Date: 20120718
  Transmission Date: 20120928
  Serious: No
  Sender: FDA-Public Use
  Company Number: US-B.I. PHARMACEUTICALS,INC./RIDGEFIELD-2012-BP-16292BP

PATIENT
  Sex: Female

DRUGS (3)
  1. TRAMADOL HYDROCHLORIDE [Suspect]
     Indication: PAIN
     Route: 048
     Dates: start: 20110618
  2. IBUPROFEN [Suspect]
     Indication: PAIN
     Dosage: 2400 MG
     Route: 048
     Dates: start: 20120626
  3. MOBIC [Suspect]
     Indication: PAIN
     Dosage: 7.5 MG
     Route: 048
     Dates: start: 20120416, end: 20120421

REACTIONS (3)
  - DIZZINESS [None]
  - DRUG INEFFECTIVE [None]
  - NAUSEA [None]
